FAERS Safety Report 20609718 (Version 2)
Quarter: 2022Q2

REPORT INFORMATION
  Report Type: Spontaneous
  Country: CN (occurrence: CN)
  Receive Date: 20220318
  Receipt Date: 20220412
  Transmission Date: 20220721
  Serious: Yes (Hospitalization)
  Sender: FDA-Public Use
  Company Number: CN-NOVOPROD-899042

PATIENT
  Age: 55 Year
  Sex: Male

DRUGS (1)
  1. NOVOLIN R [Suspect]
     Active Substance: INSULIN HUMAN
     Indication: Type 2 diabetes mellitus
     Dosage: UNK
     Route: 065

REACTIONS (5)
  - Diabetic retinopathy [Recovered/Resolved]
  - Angiopathy [Recovered/Resolved]
  - Injection site erythema [Unknown]
  - Injection site induration [Unknown]
  - Suspected product quality issue [Unknown]
